FAERS Safety Report 5377821-4 (Version None)
Quarter: 2007Q3

REPORT INFORMATION
  Report Type: 
  Country: None (occurrence: None)
  Receive Date: 20070703
  Receipt Date: 20070622
  Transmission Date: 20080115
  Serious: Yes (Hospitalization, Other)
  Sender: FDA-Public Use
  Company Number: DE-PFIZER INC-2007052653

PATIENT
  Age: 51 Year
  Sex: Male

DRUGS (5)
  1. NORVASC [Interacting]
     Indication: HYPERTENSION
     Dosage: DAILY DOSE:5MG
     Route: 048
     Dates: start: 20070215, end: 20070217
  2. SEROQUEL [Interacting]
     Dosage: DAILY DOSE:600MG
     Route: 048
     Dates: start: 20070215, end: 20070221
  3. DELIX PLUS [Suspect]
     Dosage: DAILY DOSE:5MG
     Route: 048
  4. LORAZEPAM [Concomitant]
     Route: 048
  5. PANTOZOL [Concomitant]

REACTIONS (8)
  - ATRIAL FIBRILLATION [None]
  - ATRIAL FLUTTER [None]
  - BLOOD GLUCOSE INCREASED [None]
  - DRUG INTERACTION [None]
  - FALL [None]
  - RIB FRACTURE [None]
  - SYNCOPE [None]
  - WHITE BLOOD CELL COUNT INCREASED [None]
